FAERS Safety Report 12635901 (Version 2)
Quarter: 2016Q3

REPORT INFORMATION
  Report Type: Spontaneous
  Country: US (occurrence: US)
  Receive Date: 20160809
  Receipt Date: 20160923
  Transmission Date: 20161109
  Serious: Yes (Other)
  Sender: FDA-Public Use
  Company Number: US-PFIZER INC-2016373133

PATIENT
  Sex: Female

DRUGS (1)
  1. SONATA [Suspect]
     Active Substance: ZALEPLON
     Dosage: UNK

REACTIONS (3)
  - Nightmare [Unknown]
  - Hallucination [Unknown]
  - Drug hypersensitivity [Unknown]
